FAERS Safety Report 9789971 (Version 1)
Quarter: 2013Q4

REPORT INFORMATION
  Report Type: Spontaneous
  Country: US (occurrence: None)
  Receive Date: 20131230
  Receipt Date: 20131230
  Transmission Date: 20140711
  Serious: Yes (Life-Threatening, Hospitalization, Disabling)
  Sender: FDA-Public Use
  Company Number: None

PATIENT
  Age: 21 Year
  Sex: Male
  Weight: 58.97 kg

DRUGS (1)
  1. TRAMADOL [Suspect]
     Indication: PAIN
     Dosage: 2, THREE TIMES DAILY, TAKEN BY MOUTH
     Route: 048

REACTIONS (4)
  - Convulsion [None]
  - Fall [None]
  - Drug dependence [None]
  - Spinal fracture [None]
